FAERS Safety Report 21937137 (Version 1)
Quarter: 2023Q1

REPORT INFORMATION
  Report Type: Report from Study
  Country: None (occurrence: JP)
  Receive Date: 20230201
  Receipt Date: 20230201
  Transmission Date: 20230417
  Serious: No
  Sender: FDA-Public Use
  Company Number: JP-EPIZYME, INC-2022JPEPIZYME0793

PATIENT

DRUGS (6)
  1. TAZVERIK [Suspect]
     Active Substance: TAZEMETOSTAT HYDROBROMIDE
     Indication: Follicular lymphoma
     Dosage: 1600 MG
     Route: 048
     Dates: start: 20220602, end: 20221013
  2. TAZVERIK [Suspect]
     Active Substance: TAZEMETOSTAT HYDROBROMIDE
     Dosage: 1200 MG
     Route: 048
     Dates: start: 20221020, end: 20221109
  3. TAZVERIK [Suspect]
     Active Substance: TAZEMETOSTAT HYDROBROMIDE
     Dosage: 1600 MG
     Route: 048
     Dates: start: 20221110
  4. CAMOSTAT MESYLATE [Suspect]
     Active Substance: CAMOSTAT MESYLATE
     Indication: Amylase increased
     Dosage: UNK
     Route: 065
     Dates: start: 20220901
  5. CAMOSTAT MESYLATE [Suspect]
     Active Substance: CAMOSTAT MESYLATE
     Indication: Lipase increased
  6. SULFAMETHOXAZOLE\TRIMETHOPRIM [Concomitant]
     Active Substance: SULFAMETHOXAZOLE\TRIMETHOPRIM
     Indication: Infection prophylaxis
     Dosage: UNK
     Route: 065
     Dates: start: 20220602

REACTIONS (3)
  - Amylase increased [Recovering/Resolving]
  - Lipase increased [Recovering/Resolving]
  - Abdominal distension [Recovering/Resolving]

NARRATIVE: CASE EVENT DATE: 20220901
